FAERS Safety Report 6834759-0 (Version None)
Quarter: 2010Q3

REPORT INFORMATION
  Report Type: 
  Country: None (occurrence: None)
  Receive Date: 20100712
  Receipt Date: 20070521
  Transmission Date: 20110219
  Serious: No
  Sender: FDA-Public Use
  Company Number: US-PFIZER INC-2007027400

PATIENT
  Sex: Male
  Weight: 90.72 kg

DRUGS (2)
  1. CHANTIX [Suspect]
     Indication: SMOKING CESSATION THERAPY
     Dates: start: 20070301
  2. DRUG USED IN DIABETES [Concomitant]
     Indication: GLUCOSE TOLERANCE IMPAIRED

REACTIONS (6)
  - DRUG DOSE OMISSION [None]
  - DRUG INEFFECTIVE [None]
  - FEELING ABNORMAL [None]
  - HYPOAESTHESIA [None]
  - PARAESTHESIA [None]
  - PERIPHERAL COLDNESS [None]
